FAERS Safety Report 13876042 (Version 1)
Quarter: 2017Q3

REPORT INFORMATION
  Report Type: Spontaneous
  Country: US (occurrence: US)
  Receive Date: 20170817
  Receipt Date: 20170817
  Transmission Date: 20171127
  Serious: No
  Sender: FDA-Public Use
  Company Number: US-PFIZER INC-2017356412

PATIENT
  Age: 76 Year
  Sex: Female
  Weight: 68 kg

DRUGS (9)
  1. ADVIL PM [Suspect]
     Active Substance: DIPHENHYDRAMINE CITRATE\IBUPROFEN
     Indication: INSOMNIA
     Dosage: UNK UNK, 1X/DAY, ONCE DAILY AT NIGHT
     Route: 048
     Dates: start: 20170812, end: 20170813
  2. LEVOTHYROXINE. [Concomitant]
     Active Substance: LEVOTHYROXINE
     Indication: THYROID DISORDER
     Dosage: 75 UG, 1X/DAY
     Route: 048
  3. MULTIVITAMINUM [Concomitant]
     Indication: VITAMIN SUPPLEMENTATION
     Dosage: UNK UNK, 1X/DAY
     Route: 048
  4. IBUPROFEN. [Suspect]
     Active Substance: IBUPROFEN
     Indication: PAIN
     Dosage: 200 MG, 1X/DAY
     Route: 048
  5. AMLODIPINE [Concomitant]
     Active Substance: AMLODIPINE BESYLATE
     Indication: BLOOD PRESSURE ABNORMAL
     Dosage: 10 MG, 1X/DAY
     Route: 048
  6. ALPRAZOLAM. [Concomitant]
     Active Substance: ALPRAZOLAM
     Indication: ANXIETY
     Dosage: 0.5 DOES NOT KNOW UNITS, TABLET, BY MOUTH, ONCE A DAY
     Route: 048
  7. SERTRALINE [Concomitant]
     Active Substance: SERTRALINE HYDROCHLORIDE
     Indication: ANXIETY
     Dosage: 75 MG, DAILY
     Route: 048
  8. TRAMADOL. [Concomitant]
     Active Substance: TRAMADOL
     Indication: PAIN
     Dosage: 50 MG, CAN TAKE 2 TO 4 TABLETS A DAY AS NEEDED
     Route: 048
  9. VITAMIN B12 [Concomitant]
     Active Substance: CYANOCOBALAMIN
     Indication: VITAMIN B12 DEFICIENCY
     Dosage: 0.41 ML, 1X/DAY
     Route: 048

REACTIONS (1)
  - Erythema [Not Recovered/Not Resolved]

NARRATIVE: CASE EVENT DATE: 20170814
